FAERS Safety Report 4846363-4 (Version None)
Quarter: 2005Q4

REPORT INFORMATION
  Report Type: 
  Country: None (occurrence: None)
  Receive Date: 20051125
  Receipt Date: 20051116
  Transmission Date: 20060501
  Serious: Yes (Life-Threatening, Hospitalization, Other)
  Sender: FDA-Public Use
  Company Number: 2005150886

PATIENT
  Age: 54 Year
  Sex: Female
  Weight: 41 kg

DRUGS (4)
  1. ZELDOX (CAPSULES) (ZIPRASIDONE) [Suspect]
     Indication: SCHIZOPHRENIA
     Dosage: 120 MG (60 MG, 2 IN 1 D), ORAL
     Route: 048
     Dates: start: 20050923, end: 20051031
  2. DIAZEPAM [Concomitant]
  3. TRIHEXYPHENIDYL HCL [Concomitant]
  4. NORFLEX FOR INJECTION (ORPHENADRINE CITRATE, SODIUM BISULFITE, SODIUM [Concomitant]

REACTIONS (12)
  - ALANINE AMINOTRANSFERASE INCREASED [None]
  - ASPARTATE AMINOTRANSFERASE INCREASED [None]
  - BLOOD BILIRUBIN INCREASED [None]
  - BLOOD CREATINE PHOSPHOKINASE INCREASED [None]
  - BLOOD LACTATE DEHYDROGENASE INCREASED [None]
  - BLUNTED AFFECT [None]
  - COGWHEEL RIGIDITY [None]
  - CONFUSIONAL STATE [None]
  - PARKINSONIAN GAIT [None]
  - PSYCHOTIC DISORDER [None]
  - RESTLESSNESS [None]
  - WHITE BLOOD CELL COUNT INCREASED [None]
